FAERS Safety Report 4589746-2 (Version None)
Quarter: 2005Q1

REPORT INFORMATION
  Report Type: 
  Country: None (occurrence: None)
  Receive Date: 20050217
  Receipt Date: 20050207
  Transmission Date: 20050727
  Serious: Yes (Hospitalization)
  Sender: FDA-Public Use
  Company Number: 2005PK00241

PATIENT
  Age: 57 Year
  Sex: Female
  Weight: 94 kg

DRUGS (5)
  1. GEFITINIB [Suspect]
     Indication: NON-SMALL CELL LUNG CANCER
     Dosage: 250 MG DAILY PO
     Route: 048
     Dates: start: 20041001, end: 20050204
  2. COMBIVENT [Concomitant]
  3. PULMILIDE [Concomitant]
  4. MARCOUMAR [Concomitant]
  5. NORVASC [Concomitant]

REACTIONS (2)
  - DISEASE PROGRESSION [None]
  - PNEUMONIA [None]
